FAERS Safety Report 5330616-X (Version None)
Quarter: 2007Q2

REPORT INFORMATION
  Report Type: 
  Country: None (occurrence: None)
  Receive Date: 20070516
  Receipt Date: 20070508
  Transmission Date: 20071010
  Serious: Yes (Other)
  Sender: FDA-Public Use
  Company Number: 062-21880-07050607

PATIENT

DRUGS (3)
  1. REVLIMID [Suspect]
     Indication: KARYOTYPE ANALYSIS ABNORMAL
     Dosage: SEE IMAGE
     Route: 048
  2. REVLIMID [Suspect]
     Indication: MYELODYSPLASTIC SYNDROME
     Dosage: SEE IMAGE
     Route: 048
  3. RED BLOOD CELLS [Concomitant]

REACTIONS (4)
  - ANOREXIA [None]
  - DIARRHOEA [None]
  - PLATELET COUNT INCREASED [None]
  - PRURITUS [None]
